FAERS Safety Report 7816798-6 (Version None)
Quarter: 2011Q4

REPORT INFORMATION
  Report Type: 
  Country: None (occurrence: None)
  Receive Date: 20111017
  Receipt Date: 20111013
  Transmission Date: 20120403
  Serious: Yes (Hospitalization)
  Sender: FDA-Public Use
  Company Number: US-ACTELION-A-NJ2011-52400

PATIENT

DRUGS (3)
  1. OXYGEN [Concomitant]
  2. SILDENAFIL CITRATE [Concomitant]
  3. EPOPROSTENOL SODIUM [Suspect]
     Indication: PULMONARY ARTERIAL HYPERTENSION
     Dosage: 24.5 NG/KG, PER MIN
     Route: 041
     Dates: start: 20110617

REACTIONS (6)
  - FALL [None]
  - SYNCOPE [None]
  - CELLULITIS [None]
  - HAEMATOMA [None]
  - TRANSFUSION [None]
  - ANAEMIA [None]
